FAERS Safety Report 24412231 (Version 1)
Quarter: 2024Q4

REPORT INFORMATION
  Report Type: Spontaneous
  Country: US (occurrence: None)
  Receive Date: 20241007
  Receipt Date: 20241007
  Transmission Date: 20250114
  Serious: Yes (Hospitalization, Disabling)
  Sender: Public
  Company Number: None

PATIENT
  Age: 75 Year
  Sex: Male
  Weight: 97.8 kg

DRUGS (5)
  1. OPDIVO [Suspect]
     Active Substance: NIVOLUMAB
     Indication: Renal cell carcinoma
     Dosage: FREQUENCY : ONCE;?
     Route: 041
     Dates: start: 20240802, end: 20240802
  2. CABOZANTINIB [Suspect]
     Active Substance: CABOZANTINIB
     Dates: start: 20240802
  3. PYRIDOSTIGMINE [Suspect]
     Active Substance: PYRIDOSTIGMINE
  4. HUMAN IMMUNOGLOBULIN G [Suspect]
     Active Substance: HUMAN IMMUNOGLOBULIN G
  5. PREDNISONE [Suspect]
     Active Substance: PREDNISONE

REACTIONS (10)
  - Myasthenia gravis [None]
  - Pulmonary embolism [None]
  - Deep vein thrombosis [None]
  - Diarrhoea [None]
  - Urinary retention [None]
  - Dysphagia [None]
  - Diplopia [None]
  - Eyelid ptosis [None]
  - Hypertransaminasaemia [None]
  - Therapy interrupted [None]

NARRATIVE: CASE EVENT DATE: 20240903
